FAERS Safety Report 6317906-9 (Version None)
Quarter: 2009Q3

REPORT INFORMATION
  Report Type: 
  Country: None (occurrence: None)
  Receive Date: 20090821
  Receipt Date: 20090820
  Transmission Date: 20100115
  Serious: Yes (Hospitalization)
  Sender: FDA-Public Use
  Company Number: IT-JNJFOC-20090804935

PATIENT
  Sex: Male
  Weight: 55 kg

DRUGS (2)
  1. TMC125 [Suspect]
     Route: 048
  2. TMC125 [Suspect]
     Indication: HIV INFECTION
     Route: 048

REACTIONS (3)
  - ASTHENIA [None]
  - BLINDNESS TRANSIENT [None]
  - MYALGIA [None]
